FAERS Safety Report 20722371 (Version 2)
Quarter: 2023Q1

REPORT INFORMATION
  Report Type: Report from Study
  Country: US (occurrence: US)
  Receive Date: 20220418
  Receipt Date: 20230320
  Transmission Date: 20230418
  Serious: Yes (Other)
  Sender: FDA-Public Use
  Company Number: US-JAZZ-2022-US-012015

PATIENT
  Sex: Female

DRUGS (4)
  1. XYWAV [Suspect]
     Active Substance: CALCIUM OXYBATE\MAGNESIUM OXYBATE\POTASSIUM OXYBATE\SODIUM OXYBATE
     Indication: Narcolepsy
     Dosage: UNK
     Route: 048
  2. XYWAV [Suspect]
     Active Substance: CALCIUM OXYBATE\MAGNESIUM OXYBATE\POTASSIUM OXYBATE\SODIUM OXYBATE
     Indication: Cataplexy
  3. XYWAV [Suspect]
     Active Substance: CALCIUM OXYBATE\MAGNESIUM OXYBATE\POTASSIUM OXYBATE\SODIUM OXYBATE
     Indication: Somnolence
  4. ADDERALL [Concomitant]
     Active Substance: AMPHETAMINE ASPARTATE\AMPHETAMINE SULFATE\DEXTROAMPHETAMINE SACCHARATE\DEXTROAMPHETAMINE SULFATE
     Indication: Product used for unknown indication
     Dosage: UNK
     Dates: start: 20191203

REACTIONS (17)
  - Spinal fracture [Unknown]
  - Tachycardia [Unknown]
  - Visual impairment [Unknown]
  - Upper respiratory tract infection [Recovered/Resolved]
  - Intervertebral disc degeneration [Unknown]
  - Arthritis [Unknown]
  - Hypotension [Unknown]
  - Hypoaesthesia [Unknown]
  - Illness [Unknown]
  - Alopecia [Unknown]
  - Ear infection [Recovered/Resolved]
  - Migraine [Unknown]
  - Headache [Unknown]
  - Paraesthesia [Unknown]
  - Somnolence [Unknown]
  - Hypersensitivity [Unknown]
  - Intentional product use issue [Unknown]
